FAERS Safety Report 5023033-3 (Version None)
Quarter: 2006Q2

REPORT INFORMATION
  Report Type: 
  Country: None (occurrence: None)
  Receive Date: 20060426
  Receipt Date: 20060328
  Transmission Date: 20061013
  Serious: Yes (Other)
  Sender: FDA-Public Use
  Company Number: 2006043863

PATIENT
  Sex: 0

DRUGS (1)
  1. LYRICA [Suspect]
     Dosage: 200 MG (100 MG, 2 IN 1 D)

REACTIONS (2)
  - ABDOMINAL PAIN [None]
  - NAUSEA [None]
